FAERS Safety Report 12592512 (Version 2)
Quarter: 2016Q3

REPORT INFORMATION
  Report Type: Report from Study
  Country: None (occurrence: US)
  Receive Date: 20160726
  Receipt Date: 20160826
  Transmission Date: 20161109
  Serious: Yes (Death)
  Sender: FDA-Public Use
  Company Number: US-BIOVITRUM-2016US0548

PATIENT
  Age: 10 Year
  Sex: Male
  Weight: 29 kg

DRUGS (7)
  1. PREVACID [Concomitant]
     Active Substance: LANSOPRAZOLE
  2. BACLOFEN. [Concomitant]
     Active Substance: BACLOFEN
  3. ROBINUL [Concomitant]
     Active Substance: GLYCOPYRROLATE
  4. ZYPREXA [Concomitant]
     Active Substance: OLANZAPINE
  5. LYRICA [Concomitant]
     Active Substance: PREGABALIN
  6. KINERET [Suspect]
     Active Substance: ANAKINRA
     Route: 058
     Dates: start: 20160218, end: 20160504
  7. CELEBREX [Concomitant]
     Active Substance: CELECOXIB
     Indication: AUTOIMMUNE DISORDER

REACTIONS (1)
  - Pulmonary haemorrhage [Fatal]

NARRATIVE: CASE EVENT DATE: 20160504
